FAERS Safety Report 7076991-X (Version None)
Quarter: 2010Q4

REPORT INFORMATION
  Report Type: 
  Country: None (occurrence: None)
  Receive Date: 20101101
  Receipt Date: 20101021
  Transmission Date: 20110411
  Serious: Yes (Hospitalization, Disabling, Other)
  Sender: FDA-Public Use
  Company Number: CA-JNJFOC-20100407510

PATIENT
  Sex: Female
  Weight: 108 kg

DRUGS (3)
  1. REMICADE [Suspect]
     Indication: COLITIS ULCERATIVE
     Dosage: 2 DOSES TOTAL
     Route: 042
  2. REMICADE [Suspect]
     Dosage: 2 DOSES TOTAL
     Route: 042
  3. IMURAN [Concomitant]
     Indication: COLITIS ULCERATIVE

REACTIONS (2)
  - ARTHRALGIA [None]
  - INTERVERTEBRAL DISC DEGENERATION [None]
